FAERS Safety Report 20263205 (Version 1)
Quarter: 2021Q4

REPORT INFORMATION
  Report Type: Report from Study
  Country: JP (occurrence: JP)
  Receive Date: 20211231
  Receipt Date: 20211231
  Transmission Date: 20220303
  Serious: Yes (Hospitalization)
  Sender: FDA-Public Use
  Company Number: JP-JNJFOC-A-CH2017-151203

PATIENT
  Age: 66 Year
  Sex: Female
  Weight: 48.6 kg

DRUGS (17)
  1. UPTRAVI [Suspect]
     Active Substance: SELEXIPAG
     Indication: Pulmonary arterial hypertension
     Dosage: 400 UG, BID
     Route: 048
     Dates: start: 20170119, end: 20170202
  2. UPTRAVI [Suspect]
     Active Substance: SELEXIPAG
     Dosage: 200 UG, BID
     Route: 048
     Dates: start: 20170106, end: 20170118
  3. UPTRAVI [Suspect]
     Active Substance: SELEXIPAG
     Dosage: 600 UG, BID
     Route: 048
     Dates: start: 20170203, end: 20170215
  4. UPTRAVI [Suspect]
     Active Substance: SELEXIPAG
     Dosage: 800 UG, BID
     Route: 048
     Dates: start: 20170216
  5. OPSUMIT [Suspect]
     Active Substance: MACITENTAN
     Indication: Pulmonary arterial hypertension
     Dosage: IN THE MORNING
     Route: 048
     Dates: start: 20160709, end: 20161013
  6. OPSUMIT [Suspect]
     Active Substance: MACITENTAN
     Indication: Pulmonary arterial hypertension
     Dosage: IN THE MORNING
     Route: 048
     Dates: start: 20161014
  7. ADCIRCA [Concomitant]
     Active Substance: TADALAFIL
     Indication: Pulmonary arterial hypertension
     Dosage: 40 MG, QD
     Dates: start: 20160628
  8. PROGRAF [Concomitant]
     Active Substance: TACROLIMUS
     Indication: Polymyositis
     Dosage: 3 MG, QD
     Dates: start: 20160616
  9. ALFAROL [Concomitant]
     Active Substance: ALFACALCIDOL
     Indication: Polymyositis
     Dosage: 1 UG, QD
     Dates: start: 20160616
  10. BONALON [Concomitant]
     Active Substance: ALENDRONATE SODIUM
     Indication: Polymyositis
     Dosage: UNK
     Dates: start: 20160616
  11. SULFAMETHOXAZOLE\TRIMETHOPRIM [Concomitant]
     Active Substance: SULFAMETHOXAZOLE\TRIMETHOPRIM
     Indication: Polymyositis
     Dosage: 1 DF, QD
     Dates: start: 20160627
  12. NEXIUM [Concomitant]
     Active Substance: ESOMEPRAZOLE MAGNESIUM
     Indication: Polymyositis
     Dosage: 20 MG, QD
     Dates: start: 20160616
  13. OMEGA-3-ACID ETHYL ESTERS [Concomitant]
     Active Substance: OMEGA-3-ACID ETHYL ESTERS
     Indication: Polymyositis
     Dosage: 2 G, QD
     Dates: start: 20161111
  14. PREDNISOLONE [Concomitant]
     Active Substance: PREDNISOLONE
     Indication: Mixed connective tissue disease
     Dosage: 15-37.5MG PER TIMEONCE OR TWICE PER DAY
     Route: 048
     Dates: start: 20160611
  15. PREDNISOLONE [Concomitant]
     Active Substance: PREDNISOLONE
     Route: 048
  16. PREDNISOLONE [Concomitant]
     Active Substance: PREDNISOLONE
     Route: 048
  17. TADALAFIL [Concomitant]
     Active Substance: TADALAFIL
     Indication: Pulmonary arterial hypertension

REACTIONS (8)
  - Interstitial lung disease [Recovering/Resolving]
  - Concomitant disease aggravated [Recovering/Resolving]
  - Polymyositis [Recovering/Resolving]
  - Dermatomyositis [Recovering/Resolving]
  - Pain in jaw [Recovering/Resolving]
  - Diarrhoea [Recovering/Resolving]
  - Arthralgia [Recovered/Resolved]
  - Faeces soft [Recovering/Resolving]

NARRATIVE: CASE EVENT DATE: 20170119
